FAERS Safety Report 7586980 (Version 3)
Quarter: 2012Q4

REPORT INFORMATION
  Report Type: 
  Country: US (occurrence: US)
  Receive Date: 20100915
  Receipt Date: 20121022
  Transmission Date: 20130627
  Serious: Yes (Hospitalization)
  Sender: FDA-Public Use
  Company Number: US-BAYER-201033321NA

PATIENT
  Age: 46 Year
  Sex: Female
  Weight: 126.98 kg

DRUGS (6)
  1. YAZ [Suspect]
     Indication: UTERINE LEIOMYOMA
     Dosage: UNK
     Route: 048
     Dates: start: 200311, end: 200402
  2. YAZ [Suspect]
     Indication: MENORRHAGIA
  3. YASMIN [Suspect]
     Indication: MENORRHAGIA
     Route: 048
  4. MOTRIN [Concomitant]
  5. IRON [Concomitant]
  6. WARFARIN [Concomitant]
     Indication: THROMBOSIS PROPHYLAXIS

REACTIONS (5)
  - Deep vein thrombosis [None]
  - Depression [None]
  - Fear [None]
  - Anxiety [None]
  - Mental disorder [None]
